FAERS Safety Report 9721537 (Version 2)
Quarter: 2013Q4

REPORT INFORMATION
  Report Type: Report from Study
  Country: CA (occurrence: CA)
  Receive Date: 20131130
  Receipt Date: 20131130
  Transmission Date: 20140711
  Serious: Yes (Hospitalization)
  Sender: FDA-Public Use
  Company Number: CA-BRISTOL-MYERS SQUIBB COMPANY-19715135

PATIENT
  Age: 37 Year
  Sex: Female

DRUGS (7)
  1. TAXOL [Suspect]
     Indication: BREAST CANCER
     Dates: start: 20131002
  2. PERTUZUMAB [Suspect]
     Indication: BREAST CANCER
     Dosage: LOADING DOSE INTRAVENOUS PERTUZUMAB 840MG INFUSION?MAINTENANCE DOSE OF PERTUZUMAB 420MG /3 WEEKS.
     Route: 042
     Dates: start: 20131001
  3. TRASTUZUMAB [Suspect]
     Indication: BREAST CANCER
     Dosage: LADNG DE  TRASTUZUMAB 462MG (8MG/KG AS PER PROTOCOL?MINCE DSE OF 6MG/KG EVERY /3 WEEKS
     Dates: start: 20131002
  4. PROCHLORPERAZINE MALEATE [Concomitant]
     Indication: PROPHYLAXIS OF NAUSEA AND VOMITING
     Dates: start: 20131003
  5. LIDOCAINE [Concomitant]
     Indication: MUCOSAL INFLAMMATION
     Dosage: 20 ML;(5 ML,4 IN 1 AS REQUIRED)?NYSTATIN MOUTHWASH
     Route: 048
     Dates: start: 20131010
  6. CLARITIN [Concomitant]
     Dates: start: 20131008
  7. LOPERAMIDE [Concomitant]
     Route: 048
     Dates: start: 20131013

REACTIONS (2)
  - Febrile neutropenia [Recovered/Resolved]
  - Neutrophil count decreased [Recovered/Resolved]
